FAERS Safety Report 8112411-1 (Version None)
Quarter: 2011Q4

REPORT INFORMATION
  Report Type: 
  Country: None (occurrence: None)
  Receive Date: 20111223
  Receipt Date: 20110802
  Transmission Date: 20120403
  Serious: No
  Sender: FDA-Public Use
  Company Number: PHEH2011US00534

PATIENT
  Age: 14 Year
  Sex: Male

DRUGS (2)
  1. RITALIN-SR [Suspect]
     Dosage: 20 MG, QD
  2. RITALIN [Suspect]

REACTIONS (6)
  - HEADACHE [None]
  - JOINT SWELLING [None]
  - NODULE [None]
  - OEDEMA PERIPHERAL [None]
  - NAUSEA [None]
  - WITHDRAWAL SYNDROME [None]
